FAERS Safety Report 15157747 (Version 2)
Quarter: 2019Q2

REPORT INFORMATION
  Report Type: Spontaneous
  Country: US (occurrence: US)
  Receive Date: 20180718
  Receipt Date: 20190507
  Transmission Date: 20190711
  Serious: No
  Sender: FDA-Public Use
  Company Number: US-PFIZER INC-2018286342

PATIENT
  Age: 61 Year
  Sex: Female

DRUGS (2)
  1. IBRANCE [Suspect]
     Active Substance: PALBOCICLIB
     Indication: BREAST CANCER METASTATIC
     Dosage: 75 MG, CYCLIC (DAY 1-21/28)
     Route: 048
     Dates: start: 20170601
  2. IBRANCE [Suspect]
     Active Substance: PALBOCICLIB
     Dosage: 75 MG, 1X/DAY
     Route: 048
     Dates: start: 20180713

REACTIONS (7)
  - Irritability [Unknown]
  - Dry mouth [Unknown]
  - Myalgia [Unknown]
  - Alopecia [Unknown]
  - Pain [Unknown]
  - Aphthous ulcer [Unknown]
  - Bone pain [Unknown]

NARRATIVE: CASE EVENT DATE: 20180713
